FAERS Safety Report 4551793-4 (Version None)
Quarter: 2005Q1

REPORT INFORMATION
  Report Type: 
  Country: None (occurrence: None)
  Receive Date: 20050111
  Receipt Date: 20050104
  Transmission Date: 20050727
  Serious: Yes (Death, Hospitalization)
  Sender: FDA-Public Use
  Company Number: 200510011BNE

PATIENT
  Age: 79 Year
  Sex: Female

DRUGS (4)
  1. CIPROFLOXACIN [Suspect]
     Indication: SEPSIS
     Dosage: 500 MG, BID, ORAL
     Route: 048
     Dates: start: 20030622, end: 20030626
  2. NIFEDIPINE [Concomitant]
  3. RIVASTIGMINE [Concomitant]
  4. SINEMET [Concomitant]

REACTIONS (3)
  - CLOSTRIDIUM COLITIS [None]
  - DEHYDRATION [None]
  - UROSEPSIS [None]
